FAERS Safety Report 7216425-5 (Version None)
Quarter: 2011Q1

REPORT INFORMATION
  Report Type: 
  Country: None (occurrence: None)
  Receive Date: 20110107
  Receipt Date: 20101231
  Transmission Date: 20110831
  Serious: Yes (Death)
  Sender: FDA-Public Use
  Company Number: US-PFIZER INC-2011001470

PATIENT
  Sex: Male

DRUGS (4)
  1. DILTIAZEM [Suspect]
     Route: 048
  2. VENLAFAXINE HCL [Suspect]
     Route: 048
  3. ALPRAZOLAM [Suspect]
     Route: 048
  4. MIRTAZAPINE [Suspect]
     Route: 048

REACTIONS (3)
  - CARDIAC ARREST [None]
  - COMPLETED SUICIDE [None]
  - RESPIRATORY ARREST [None]
